FAERS Safety Report 12108689 (Version 1)
Quarter: 2016Q1

REPORT INFORMATION
  Report Type: Spontaneous
  Country: US (occurrence: None)
  Receive Date: 20160222
  Receipt Date: 20160222
  Transmission Date: 20160526
  Serious: No
  Sender: FDA-Public Use
  Company Number: None

PATIENT
  Age: 57 Year
  Sex: Male
  Weight: 77.11 kg

DRUGS (3)
  1. DOXYCYCL [Concomitant]
  2. METAXALONE 800MG COREPHARM [Suspect]
     Active Substance: METAXALONE
     Indication: MUSCLE SPASMS
     Dosage: 1 PILL  TWICE DAILY TAKEN BY MOUTH
     Route: 048
     Dates: start: 20160212, end: 20160219
  3. FERROUS SULF [Concomitant]

REACTIONS (1)
  - Headache [None]

NARRATIVE: CASE EVENT DATE: 20160220
